FAERS Safety Report 25475727 (Version 1)
Quarter: 2025Q2

REPORT INFORMATION
  Report Type: Spontaneous
  Country: CL (occurrence: CL)
  Receive Date: 20250624
  Receipt Date: 20250624
  Transmission Date: 20250716
  Serious: Yes (Hospitalization, Other)
  Sender: JOHNSON AND JOHNSON
  Company Number: CL-JNJFOC-20250623202

PATIENT
  Sex: Male
  Weight: 70 kg

DRUGS (3)
  1. REMICADE [Suspect]
     Active Substance: INFLIXIMAB
     Indication: Colitis ulcerative
     Route: 041
     Dates: start: 20240219
  2. AZATHIOPRINE [Suspect]
     Active Substance: AZATHIOPRINE
  3. ADALIMUMAB [Concomitant]
     Active Substance: ADALIMUMAB
     Indication: Product used for unknown indication

REACTIONS (11)
  - Cytomegalovirus infection [Unknown]
  - Clostridium difficile infection [Unknown]
  - Colitis [Unknown]
  - Anaphylactic reaction [Unknown]
  - Colitis ulcerative [Unknown]
  - Crohn^s disease [Unknown]
  - Liver function test abnormal [Unknown]
  - Malnutrition [Unknown]
  - Dyspnoea [Not Recovered/Not Resolved]
  - Rash maculo-papular [Unknown]
  - Infusion related reaction [Unknown]

NARRATIVE: CASE EVENT DATE: 20240201
